FAERS Safety Report 22027477 (Version 1)
Quarter: 2023Q1

REPORT INFORMATION
  Report Type: Spontaneous
  Country: US (occurrence: US)
  Receive Date: 20230223
  Receipt Date: 20230223
  Transmission Date: 20230417
  Serious: Yes (Hospitalization, Other)
  Sender: FDA-Public Use
  Company Number: US-ADVANZ PHARMA-202302000998

PATIENT

DRUGS (1)
  1. CLONIDINE [Suspect]
     Active Substance: CLONIDINE
     Indication: Insomnia
     Dosage: 0.2 MG (SEVEN TO FIFTEEN PILLS)

REACTIONS (8)
  - Encephalopathy [Recovered/Resolved]
  - Sinus tachycardia [Recovered/Resolved]
  - Asthenia [Recovered/Resolved]
  - Bradycardia [Recovered/Resolved]
  - Hypertension [Recovered/Resolved]
  - Hypotension [Recovered/Resolved]
  - Dizziness [Recovered/Resolved]
  - Intentional overdose [Recovered/Resolved]
